FAERS Safety Report 8092999-X (Version None)
Quarter: 2012Q1

REPORT INFORMATION
  Report Type: 
  Country: None (occurrence: None)
  Receive Date: 20120128
  Receipt Date: 20110901
  Transmission Date: 20120608
  Serious: No
  Sender: FDA-Public Use
  Company Number: US-ABBOTT-11P-163-0851797-00

PATIENT
  Sex: Male
  Weight: 86.26 kg

DRUGS (5)
  1. HUMIRA [Suspect]
     Indication: PSORIASIS
     Route: 058
     Dates: start: 20100901, end: 20100901
  2. APRAZOLAM GENRIC XANAX [Concomitant]
     Indication: DEPRESSION
  3. SERTRALINE HYDROCHLORIDE [Concomitant]
     Indication: DEPRESSION
     Dates: start: 20110501, end: 20110601
  4. HUMIRA [Suspect]
     Route: 058
     Dates: start: 20100901, end: 20100901
  5. HUMIRA [Suspect]
     Route: 058
     Dates: start: 20100901, end: 20110601

REACTIONS (2)
  - PSORIASIS [None]
  - PAIN OF SKIN [None]
